FAERS Safety Report 14266667 (Version 1)
Quarter: 2017Q4

REPORT INFORMATION
  Report Type: Spontaneous
  Country: FR (occurrence: FR)
  Receive Date: 20171211
  Receipt Date: 20171211
  Transmission Date: 20180321
  Serious: Yes (Other)
  Sender: FDA-Public Use
  Company Number: FR-MERCK KGAA-2036978

PATIENT
  Age: 63 Year
  Sex: Female

DRUGS (2)
  1. NOVOTHYROX [Suspect]
     Active Substance: LEVOTHYROXINE SODIUM
     Dates: start: 20170526
  2. NOVOTHYROX [Suspect]
     Active Substance: LEVOTHYROXINE SODIUM
     Indication: PRODUCT USED FOR UNKNOWN INDICATION

REACTIONS (26)
  - Irritability [None]
  - Memory impairment [None]
  - Arthralgia [None]
  - Depressed mood [None]
  - Dyspnoea [None]
  - Asthenia [None]
  - Mood swings [None]
  - Loss of personal independence in daily activities [None]
  - Insomnia [None]
  - Fatigue [None]
  - Eye disorder [None]
  - Gastrointestinal disorder [None]
  - Stress [None]
  - Blood creatinine increased [None]
  - Vertigo [None]
  - Weight increased [None]
  - Dyspepsia [None]
  - Headache [None]
  - Alopecia [None]
  - Myalgia [None]
  - Anger [None]
  - Blood thyroid stimulating hormone increased [Recovered/Resolved]
  - Arrhythmia [None]
  - Blood pressure decreased [None]
  - Anxiety [None]
  - Thyroxine increased [None]

NARRATIVE: CASE EVENT DATE: 20170526
